FAERS Safety Report 4503292-3 (Version None)
Quarter: 2004Q4

REPORT INFORMATION
  Report Type: 
  Country: None (occurrence: None)
  Receive Date: 20041112
  Receipt Date: 20041101
  Transmission Date: 20050328
  Serious: No
  Sender: FDA-Public Use
  Company Number: 2004PK01855

PATIENT
  Sex: Female

DRUGS (1)
  1. MERONEM [Suspect]

REACTIONS (3)
  - ANOSMIA [None]
  - DYSGEUSIA [None]
  - REFUSAL OF TREATMENT BY PATIENT [None]
